FAERS Safety Report 7938649-1 (Version None)
Quarter: 2011Q4

REPORT INFORMATION
  Report Type: 
  Country: None (occurrence: None)
  Receive Date: 20111123
  Receipt Date: 20111117
  Transmission Date: 20120403
  Serious: Yes (Life-Threatening, Hospitalization)
  Sender: FDA-Public Use
  Company Number: US-MERCK-1111USA00712B1

PATIENT
  Age: 1 Day
  Sex: Male

DRUGS (4)
  1. FOLIC ACID [Concomitant]
     Route: 064
  2. JANUVIA [Suspect]
     Indication: POLYCYSTIC OVARIES
     Route: 064
     Dates: start: 20110428
  3. METFORMIN [Concomitant]
     Indication: POLYCYSTIC OVARIES
     Route: 064
  4. PRILOSEC [Concomitant]
     Route: 064

REACTIONS (2)
  - HYPOGLYCAEMIA [None]
  - FOETAL EXPOSURE DURING PREGNANCY [None]
